FAERS Safety Report 9581815 (Version 3)
Quarter: 2013Q4

REPORT INFORMATION
  Report Type: Spontaneous
  Country: JP (occurrence: JP)
  Receive Date: 20131002
  Receipt Date: 20131017
  Transmission Date: 20140711
  Serious: Yes (Death, Hospitalization, Disabling)
  Sender: FDA-Public Use
  Company Number: JP-B.I. PHARMACEUTICALS,INC./RIDGEFIELD-2013-BI-30406NB

PATIENT
  Age: 81 Year
  Sex: Female
  Weight: 52 kg

DRUGS (2)
  1. PRADAXA [Suspect]
     Dosage: 110 MG
     Route: 048
     Dates: end: 20130913
  2. PRADAXA [Suspect]
     Dosage: 110 MG
     Route: 048
     Dates: start: 20130920, end: 20130926

REACTIONS (4)
  - Pneumonia aspiration [Fatal]
  - Cerebral infarction [Unknown]
  - Compression fracture [Unknown]
  - Melaena [Recovered/Resolved]
